FAERS Safety Report 7355892-3 (Version None)
Quarter: 2011Q1

REPORT INFORMATION
  Report Type: 
  Country: None (occurrence: None)
  Receive Date: 20110316
  Receipt Date: 20101103
  Transmission Date: 20110831
  Serious: No
  Sender: FDA-Public Use
  Company Number: US-BAYER-201023495BCC

PATIENT
  Sex: Male

DRUGS (1)
  1. ALEVE [Suspect]
     Indication: ARTHRITIS
     Dosage: 440 MG, QD
     Dates: start: 20080101

REACTIONS (1)
  - NO ADVERSE EVENT [None]
